FAERS Safety Report 12440471 (Version 1)
Quarter: 2016Q2

REPORT INFORMATION
  Report Type: Spontaneous
  Country: US (occurrence: US)
  Receive Date: 20160606
  Receipt Date: 20160606
  Transmission Date: 20160815
  Serious: No
  Sender: FDA-Public Use
  Company Number: US-009507513-1605USA014235

PATIENT
  Sex: Male
  Weight: 97.7 kg

DRUGS (7)
  1. ZOMETA [Concomitant]
     Active Substance: ZOLEDRONIC ACID
     Indication: BONE DISORDER
  2. VELCADE [Suspect]
     Active Substance: BORTEZOMIB
  3. ALLOPURINOL. [Concomitant]
     Active Substance: ALLOPURINOL
     Indication: GOUT
     Dosage: 400 MG, QD
     Route: 048
     Dates: start: 2014
  4. REVLIMID [Suspect]
     Active Substance: LENALIDOMIDE
  5. ANTINEOPLASTIC (UNSPECIFIED) [Suspect]
     Active Substance: UNSPECIFIED INGREDIENT
     Dosage: UNK
  6. DEXAMETHASONE. [Suspect]
     Active Substance: DEXAMETHASONE
     Dosage: UNK
  7. ACYCLOVIR. [Concomitant]
     Active Substance: ACYCLOVIR
     Indication: ANTIBIOTIC THERAPY
     Dosage: UNK
     Dates: start: 2014

REACTIONS (3)
  - Oedema peripheral [Unknown]
  - Gout [Unknown]
  - Blood test abnormal [Unknown]
